FAERS Safety Report 25446105 (Version 2)
Quarter: 2025Q3

REPORT INFORMATION
  Report Type: Spontaneous
  Country: US (occurrence: US)
  Receive Date: 20250617
  Receipt Date: 20250730
  Transmission Date: 20251021
  Serious: Yes (Hospitalization)
  Sender: ROCHE
  Company Number: US-ROCHE-10000313444

PATIENT
  Sex: Female
  Weight: 108.86 kg

DRUGS (2)
  1. XOLAIR [Suspect]
     Active Substance: OMALIZUMAB
     Indication: Urticaria
     Dosage: NO
     Route: 058
     Dates: start: 202505, end: 202505
  2. XOLAIR [Suspect]
     Active Substance: OMALIZUMAB
     Dosage: NO
     Route: 058
     Dates: start: 202505, end: 202505

REACTIONS (1)
  - Urticaria [Recovered/Resolved]
